FAERS Safety Report 9176836 (Version 1)
Quarter: 2013Q1

REPORT INFORMATION
  Report Type: Spontaneous
  Country: US (occurrence: US)
  Receive Date: 20130321
  Receipt Date: 20130321
  Transmission Date: 20140127
  Serious: No
  Sender: FDA-Public Use
  Company Number: PHEH2013US006338

PATIENT
  Age: 23 Year
  Sex: Male

DRUGS (2)
  1. TASIGNA [Suspect]
     Indication: CHRONIC MYELOID LEUKAEMIA
     Dosage: 300 MG, BID
     Route: 048
     Dates: start: 20130223
  2. PROZAC [Concomitant]

REACTIONS (2)
  - Hostility [Not Recovered/Not Resolved]
  - Anger [Not Recovered/Not Resolved]
